FAERS Safety Report 17039634 (Version 1)
Quarter: 2019Q4

REPORT INFORMATION
  Report Type: Report from Study
  Country: US (occurrence: US)
  Receive Date: 20191115
  Receipt Date: 20191115
  Transmission Date: 20200122
  Serious: No
  Sender: FDA-Public Use
  Company Number: NVSC2019US038240

PATIENT
  Age: 63 Year
  Sex: Female

DRUGS (1)
  1. COSENTYX [Suspect]
     Active Substance: SECUKINUMAB
     Indication: PSORIASIS
     Dosage: 300 MG, QMO
     Route: 058
     Dates: start: 20180725

REACTIONS (8)
  - Furuncle [Unknown]
  - Limb injury [Unknown]
  - Vaginal disorder [Unknown]
  - Oropharyngeal pain [Unknown]
  - Wound complication [Unknown]
  - Sinusitis [Unknown]
  - Erythema nodosum [Unknown]
  - Rash [Unknown]
